FAERS Safety Report 5965762-0 (Version None)
Quarter: 2008Q4

REPORT INFORMATION
  Report Type: 
  Country: None (occurrence: None)
  Receive Date: 20081125
  Receipt Date: 20081120
  Transmission Date: 20090506
  Serious: Yes (Hospitalization)
  Sender: FDA-Public Use
  Company Number: FR-ABBOTT-08P-056-0488915-00

PATIENT
  Age: 49 Year
  Sex: Male

DRUGS (6)
  1. ZECLAR TABLETS [Suspect]
     Indication: MYCOBACTERIUM AVIUM COMPLEX INFECTION
     Route: 048
     Dates: start: 20080904
  2. RIFABUTINE [Suspect]
     Indication: MYCOBACTERIUM AVIUM COMPLEX INFECTION
     Route: 048
     Dates: start: 20080904
  3. CARBOPLATIN [Suspect]
     Indication: NEUROENDOCRINE CARCINOMA
     Dates: start: 20080903, end: 20080904
  4. CARBOPLATIN [Suspect]
     Dates: start: 20080924
  5. ETOPOSIDE [Suspect]
     Indication: NEUROENDOCRINE CARCINOMA
     Route: 042
     Dates: start: 20080904, end: 20080906
  6. ETOPOSIDE [Suspect]
     Route: 042
     Dates: start: 20080924

REACTIONS (2)
  - ANAEMIA [None]
  - NEUTROPENIA [None]
